FAERS Safety Report 13175261 (Version 1)
Quarter: 2017Q1

REPORT INFORMATION
  Report Type: Spontaneous
  Country: GB (occurrence: GB)
  Receive Date: 20170201
  Receipt Date: 20170201
  Transmission Date: 20170428
  Serious: Yes (Hospitalization)
  Sender: FDA-Public Use
  Company Number: GB-PFIZER INC-2017035937

PATIENT
  Age: 61 Year
  Sex: Male

DRUGS (20)
  1. DABIGATRAN ETEXILATE [Concomitant]
     Active Substance: DABIGATRAN ETEXILATE
     Dosage: 150 MG, 2X/DAY
  2. SERTRALINE HCL [Suspect]
     Active Substance: SERTRALINE HYDROCHLORIDE
     Dosage: 100 MG, 1X/DAY (IN THE MORNING)
  3. CYCLIZINE [Concomitant]
     Active Substance: CYCLIZINE
     Dosage: 50 MG, 1 TO BE TAKEN UP TO 3 TIMES A DAY. DRUG WITHDRAWN
  4. LANSOPRAZOLE. [Concomitant]
     Active Substance: LANSOPRAZOLE
     Dosage: 15 MG, 1X/DAY, IN THE MORNING
  5. CHEMYDUR [Concomitant]
     Dosage: 2 DF, 2X/DAY
  6. TAMSULOSIN [Suspect]
     Active Substance: TAMSULOSIN
     Dosage: 400 UG, 2X/DAY
  7. DILTIAZEM. [Concomitant]
     Active Substance: DILTIAZEM
     Dosage: 300 MG, 1X/DAY
  8. FUROSEMIDE. [Concomitant]
     Active Substance: FUROSEMIDE
     Dosage: ^40 DFS, 1X/DAY, IN THE MORNING
  9. CODEINE [Concomitant]
     Active Substance: CODEINE
     Dosage: 2 DF, 4X/DAY
  10. AMLODIPINE [Concomitant]
     Active Substance: AMLODIPINE BESYLATE
     Dosage: 10 MG, 1X/DAY
  11. DOCUSATE [Concomitant]
     Active Substance: DOCUSATE
     Dosage: 200 MG, 2X/DAY
  12. NICORANDIL [Concomitant]
     Active Substance: NICORANDIL
     Dosage: 10 MG, 2X/DAY
  13. RAMIPRIL. [Concomitant]
     Active Substance: RAMIPRIL
     Dosage: 2.5 MG, 1X/DAY (AT NIGHT)
  14. RANOLAZINE [Concomitant]
     Active Substance: RANOLAZINE
     Dosage: 750 MG, 2X/DAY
  15. ALLOPURINOL. [Concomitant]
     Active Substance: ALLOPURINOL
     Dosage: 300 MG, 1X/DAY
  16. ATORVASTATIN [Concomitant]
     Active Substance: ATORVASTATIN
     Dosage: 40 MG, 1X/DAY
  17. GLYCERYL TRINITRATE [Concomitant]
     Active Substance: NITROGLYCERIN
     Indication: CHEST PAIN
     Dosage: 800 UG
     Route: 060
  18. NICORANDIL [Concomitant]
     Active Substance: NICORANDIL
     Dosage: 20 MG, 2X/DAY
  19. SENNA /00142201/ [Concomitant]
     Active Substance: SENNA LEAF
     Dosage: 7.5 MG, 2X/DAY
  20. CARVEDILOL. [Concomitant]
     Active Substance: CARVEDILOL
     Dosage: 25 MG, 2 X/DAY

REACTIONS (4)
  - Confusional state [Recovered/Resolved]
  - Hypotension [Recovered/Resolved]
  - Dysarthria [Unknown]
  - Syncope [Recovered/Resolved]

NARRATIVE: CASE EVENT DATE: 20160811
